FAERS Safety Report 6869723-9 (Version None)
Quarter: 2010Q3

REPORT INFORMATION
  Report Type: 
  Country: None (occurrence: None)
  Receive Date: 20100722
  Receipt Date: 20081015
  Transmission Date: 20110219
  Serious: No
  Sender: FDA-Public Use
  Company Number: US-PFIZER INC-2008066797

PATIENT
  Sex: Female

DRUGS (15)
  1. CHANTIX [Suspect]
     Indication: SMOKING CESSATION THERAPY
  2. VIREAD [Concomitant]
  3. METOCLOPRAMIDE HCL/POLIDOCANOL [Concomitant]
  4. REYATAZ [Concomitant]
  5. ELAVIL [Concomitant]
  6. VALTREX [Concomitant]
  7. EPIVIR [Concomitant]
  8. SEROQUEL [Concomitant]
  9. CARISOPRODOL [Concomitant]
  10. CLONAZEPAM [Concomitant]
  11. FLUCONAZOLE [Concomitant]
  12. METHADONE HCL [Concomitant]
  13. HYDROMORPHONE HYDROCHLORIDE [Concomitant]
  14. CITALOPRAM HYDROBROMIDE [Concomitant]
  15. ALL OTHER THERAPEUTIC PRODUCTS [Concomitant]

REACTIONS (2)
  - ABNORMAL SLEEP-RELATED EVENT [None]
  - FEAR [None]
